FAERS Safety Report 13020486 (Version 7)
Quarter: 2017Q3

REPORT INFORMATION
  Report Type: Report from Study
  Country: US (occurrence: US)
  Receive Date: 20161212
  Receipt Date: 20170809
  Transmission Date: 20171127
  Serious: Yes (Hospitalization)
  Sender: FDA-Public Use
  Company Number: US-ACTELION-A-NJ2016-138004

PATIENT
  Age: 73 Year
  Sex: Male
  Weight: 90.7 kg

DRUGS (7)
  1. OPSUMIT [Suspect]
     Active Substance: MACITENTAN
     Indication: PULMONARY HYPERTENSION
     Dosage: 10 MG, QD
     Route: 048
     Dates: start: 20160325
  2. RIOCIGUAT [Concomitant]
     Active Substance: RIOCIGUAT
  3. BENADRYL [Concomitant]
     Active Substance: DIPHENHYDRAMINE HYDROCHLORIDE
  4. OPSUMIT [Suspect]
     Active Substance: MACITENTAN
     Dosage: UNK
     Route: 048
  5. TYVASO [Suspect]
     Active Substance: TREPROSTINIL
     Indication: PRODUCT USED FOR UNKNOWN INDICATION
     Dosage: 6 BREATHS, QID
     Route: 065
     Dates: start: 20160928
  6. TYVASO [Suspect]
     Active Substance: TREPROSTINIL
     Dosage: 3 BREATHS
     Route: 065
  7. COUMADIN [Concomitant]
     Active Substance: WARFARIN SODIUM

REACTIONS (14)
  - Dyspepsia [Unknown]
  - Decreased activity [Unknown]
  - Dyspnoea [Unknown]
  - Toothache [Unknown]
  - Bronchitis [Unknown]
  - Myalgia [Unknown]
  - Therapy non-responder [Unknown]
  - Nasal congestion [Unknown]
  - Tooth infection [Unknown]
  - Productive cough [Unknown]
  - Rhinorrhoea [Unknown]
  - Cough [Unknown]
  - Malaise [Unknown]
  - Sinusitis [Unknown]
